FAERS Safety Report 6589281-6 (Version None)
Quarter: 2010Q1

REPORT INFORMATION
  Report Type: 
  Country: None (occurrence: None)
  Receive Date: 20100218
  Receipt Date: 20100209
  Transmission Date: 20100710
  Serious: Yes (Hospitalization, Other)
  Sender: FDA-Public Use
  Company Number: FR-PFIZER INC-2009312015

PATIENT
  Age: 70 Year
  Sex: Female

DRUGS (5)
  1. CELEBREX [Suspect]
     Indication: OSTEOARTHRITIS
     Dosage: 200 MG, 1X/DAY
  2. CELEBREX [Suspect]
     Indication: PERIARTHRITIS
  3. TAHOR [Concomitant]
     Dosage: UNK
     Route: 048
  4. LEVOTHYROXINE SODIUM [Concomitant]
     Dosage: UNK
     Route: 048
  5. TANAKAN [Concomitant]
     Dosage: UNK
     Route: 048

REACTIONS (8)
  - ABDOMINAL PAIN UPPER [None]
  - ANGIOEDEMA [None]
  - DIARRHOEA [None]
  - HYPERSENSITIVITY [None]
  - MALAISE [None]
  - OCULAR HYPERAEMIA [None]
  - PALATAL OEDEMA [None]
  - PRURITUS [None]
